FAERS Safety Report 9354814 (Version 1)
Quarter: 2013Q2

REPORT INFORMATION
  Report Type: Spontaneous
  Country: US (occurrence: None)
  Receive Date: 20130618
  Receipt Date: 20130618
  Transmission Date: 20140414
  Serious: Yes (Hospitalization)
  Sender: FDA-Public Use
  Company Number: None

PATIENT
  Age: 53 None
  Sex: Male
  Weight: 76.2 kg

DRUGS (4)
  1. FENTANYL TRANDERMAL SYSTEM [Suspect]
     Indication: BACK PAIN
     Dosage: I PATCH EVERY 3 DAYS ON THE SKIN
     Dates: start: 20130501, end: 20130506
  2. FETANYL PATCHES [Concomitant]
  3. AMITRIPTYLINE [Concomitant]
  4. NIESPAN [Concomitant]

REACTIONS (3)
  - Drug withdrawal syndrome [None]
  - Product substitution issue [None]
  - Product quality issue [None]
